FAERS Safety Report 6683342-9 (Version None)
Quarter: 2010Q2

REPORT INFORMATION
  Report Type: 
  Country: None (occurrence: None)
  Receive Date: 20100415
  Receipt Date: 20100412
  Transmission Date: 20101027
  Serious: Yes (Death, Hospitalization, Disabling, Other)
  Sender: FDA-Public Use
  Company Number: PHHY2009JP25313

PATIENT
  Sex: Male
  Weight: 45 kg

DRUGS (8)
  1. ZOMETA [Suspect]
     Indication: METASTASES TO BONE
     Dosage: 4 MG, QMO
     Route: 042
     Dates: start: 20060807, end: 20071206
  2. ZOLADEX [Concomitant]
     Indication: PROSTATE CANCER
     Dosage: 3.6 MG, UNK
     Route: 058
     Dates: start: 20040701
  3. MOBIC [Concomitant]
     Indication: PAIN
     Dosage: 10 MG, UNK
     Route: 048
     Dates: start: 20050725, end: 20060904
  4. ODYNE [Concomitant]
     Indication: PROSTATE CANCER
     Dosage: 3 DF, UNK
     Route: 048
     Dates: start: 20060612, end: 20070219
  5. OXYCONTIN [Concomitant]
     Indication: PAIN
     Dosage: 10 MG, UNK
     Route: 048
     Dates: start: 20070219
  6. CASODEX [Concomitant]
     Indication: PROSTATE CANCER
     Dosage: 80 MG, UNK
     Route: 048
     Dates: start: 20070519, end: 20071019
  7. ETHINYL ESTRADIOL [Concomitant]
     Indication: PROSTATE CANCER
     Dosage: 3 MG, UNK
     Route: 065
     Dates: start: 20071019, end: 20071212
  8. BLOOD TRANSFUSION, AUXILIARY PRODUCTS [Concomitant]
     Dosage: UNK
     Dates: start: 20090619

REACTIONS (9)
  - GASTRIC ULCER HAEMORRHAGE [None]
  - OSTEOLYSIS [None]
  - OSTEOMYELITIS [None]
  - PAIN [None]
  - PAIN IN JAW [None]
  - PROSTATE CANCER [None]
  - STOMATITIS [None]
  - TOOTH EXTRACTION [None]
  - TOOTH LOSS [None]
